FAERS Safety Report 24605783 (Version 1)
Quarter: 2024Q4

REPORT INFORMATION
  Report Type: Spontaneous
  Country: US (occurrence: US)
  Receive Date: 20241111
  Receipt Date: 20241111
  Transmission Date: 20250115
  Serious: No
  Sender: BAUSCH AND LOMB
  Company Number: US-BAUSCHBL-2024BNL036842

PATIENT
  Sex: Female

DRUGS (2)
  1. XIIDRA [Suspect]
     Active Substance: LIFITEGRAST
     Indication: Dry eye
     Dosage: 1 GTT BID RECEIVED TOTAL 3 DOSES 2 DOSES ON 30/OCT/2024 MORN AND EVE, 1 DOSE ON 31/OCT/2024 IN MORN
     Route: 047
     Dates: start: 20241030, end: 20241031
  2. LIPITOR [Concomitant]
     Active Substance: ATORVASTATIN CALCIUM
     Indication: Product used for unknown indication
     Dosage: 10 MG?QD
     Route: 048

REACTIONS (6)
  - Nausea [Recovering/Resolving]
  - Abdominal discomfort [Unknown]
  - Flushing [Recovering/Resolving]
  - Dysgeusia [Recovered/Resolved]
  - Headache [Recovering/Resolving]
  - Product after taste [Recovered/Resolved]

NARRATIVE: CASE EVENT DATE: 20241001
